FAERS Safety Report 10378231 (Version 2)
Quarter: 2014Q4

REPORT INFORMATION
  Report Type: Spontaneous
  Country: US (occurrence: US)
  Receive Date: 20140812
  Receipt Date: 20141231
  Transmission Date: 20150528
  Serious: Yes (Hospitalization, Disabling, Other)
  Sender: FDA-Public Use
  Company Number: US-PFIZER INC-2014220237

PATIENT
  Sex: Male

DRUGS (27)
  1. DEPO-TESTOSTERONE [Suspect]
     Active Substance: TESTOSTERONE CYPIONATE
     Indication: ASTHENIA
     Dosage: 100 MG/ML, WEEKLY
     Dates: start: 20121001, end: 20130411
  2. TESTIM [Suspect]
     Active Substance: TESTOSTERONE
     Indication: HORMONE REPLACEMENT THERAPY
     Dosage: UNK
  3. TESTIM [Suspect]
     Active Substance: TESTOSTERONE
     Indication: LIBIDO DECREASED
  4. ANDROGEL [Suspect]
     Active Substance: TESTOSTERONE
     Indication: ERECTILE DYSFUNCTION
  5. ANDRODERM [Suspect]
     Active Substance: TESTOSTERONE
     Indication: HORMONE REPLACEMENT THERAPY
     Dosage: 4 MG (ONE PATCH), 1X/DAY
     Dates: start: 20130906, end: 20131105
  6. OXYCODONE HYDROCHLORIDE. [Concomitant]
     Active Substance: OXYCODONE HYDROCHLORIDE
     Indication: PAIN
     Dosage: 20 MG/ML (1-4ML PER DAY)
     Dates: start: 2000
  7. DEPO-TESTOSTERONE [Suspect]
     Active Substance: TESTOSTERONE CYPIONATE
     Dosage: 150 MG/ML, WEEKLY
     Dates: start: 20130430, end: 20130613
  8. DEPO-TESTOSTERONE [Suspect]
     Active Substance: TESTOSTERONE CYPIONATE
     Dosage: 100 MG/ML, WEEKLY
     Dates: start: 20130702, end: 20130820
  9. DEPO-TESTOSTERONE [Suspect]
     Active Substance: TESTOSTERONE CYPIONATE
     Dosage: 100 MG/ML
     Dates: start: 20131126, end: 20131227
  10. TESTIM [Suspect]
     Active Substance: TESTOSTERONE
     Indication: ERECTILE DYSFUNCTION
  11. ANDRODERM [Suspect]
     Active Substance: TESTOSTERONE
     Indication: LIBIDO DECREASED
  12. ANDROGEL [Suspect]
     Active Substance: TESTOSTERONE
     Indication: BLOOD TESTOSTERONE DECREASED
     Dosage: 1 DF ONE PACKET (5GRAMS), DAILY
     Dates: start: 20090616, end: 20091229
  13. DEPO-TESTOSTERONE [Suspect]
     Active Substance: TESTOSTERONE CYPIONATE
     Indication: HORMONE REPLACEMENT THERAPY
     Dosage: 150 MG/ML, DAILY
     Dates: start: 20120824
  14. DEPO-TESTOSTERONE [Suspect]
     Active Substance: TESTOSTERONE CYPIONATE
     Indication: ERECTILE DYSFUNCTION
     Dosage: 150 MG/ML, DAILY
     Dates: start: 20120925
  15. TESTIM [Suspect]
     Active Substance: TESTOSTERONE
     Indication: BLOOD TESTOSTERONE DECREASED
     Dosage: 1 DF ONE PACKET (5 GRAMS), 2X/DAY
     Dates: start: 20070106, end: 20080220
  16. DEPO-TESTOSTERONE [Suspect]
     Active Substance: TESTOSTERONE CYPIONATE
     Indication: BLOOD TESTOSTERONE DECREASED
     Dosage: 100 MG/ML, WEEKLY
     Dates: start: 20111115, end: 20120816
  17. TESTIM [Suspect]
     Active Substance: TESTOSTERONE
     Indication: ASTHENIA
  18. ALENDRONATE [Concomitant]
     Active Substance: ALENDRONATE SODIUM
     Indication: BONE LOSS
     Dosage: 70 MG, WEEKLY
     Dates: start: 2003
  19. DEPO-TESTOSTERONE [Suspect]
     Active Substance: TESTOSTERONE CYPIONATE
     Indication: LIBIDO DECREASED
     Dosage: 200 MG/ML, DAILY
     Dates: start: 20120918
  20. ANDROGEL [Suspect]
     Active Substance: TESTOSTERONE
     Indication: ASTHENIA
  21. ANDRODERM [Suspect]
     Active Substance: TESTOSTERONE
     Indication: ASTHENIA
  22. DEPO-TESTOSTERONE [Suspect]
     Active Substance: TESTOSTERONE CYPIONATE
     Dosage: 150 MG/ML, WEEKLY
     Dates: start: 20130829, end: 20130906
  23. DEPO-TESTOSTERONE [Suspect]
     Active Substance: TESTOSTERONE CYPIONATE
     Dosage: 150 MG/ML, UNK
     Dates: start: 20140107, end: 20140417
  24. ANDROGEL [Suspect]
     Active Substance: TESTOSTERONE
     Indication: HORMONE REPLACEMENT THERAPY
     Dosage: 1 DF ONE PACKET (5GRAMS), DAILY
     Dates: start: 20110126, end: 20111109
  25. ANDRODERM [Suspect]
     Active Substance: TESTOSTERONE
     Indication: ERECTILE DYSFUNCTION
  26. PANTOPRAZOLE [Concomitant]
     Active Substance: PANTOPRAZOLE SODIUM
     Indication: GASTROOESOPHAGEAL REFLUX DISEASE
     Dosage: 40 MG, UNK
     Dates: start: 2000
  27. ANDROGEL [Suspect]
     Active Substance: TESTOSTERONE
     Indication: LIBIDO DECREASED

REACTIONS (16)
  - Peripheral ischaemia [Not Recovered/Not Resolved]
  - Dyspnoea [Unknown]
  - Iron deficiency [Unknown]
  - Peripheral arterial occlusive disease [Unknown]
  - Thrombosis [Unknown]
  - Hypertension [Unknown]
  - Arthritis [Unknown]
  - Deep vein thrombosis [Unknown]
  - Monoplegia [Unknown]
  - Poor peripheral circulation [Not Recovered/Not Resolved]
  - Chest pain [Unknown]
  - Peripheral venous disease [Not Recovered/Not Resolved]
  - Phlebitis [Unknown]
  - Toe amputation [Not Recovered/Not Resolved]
  - Gangrene [Unknown]
  - Peripheral swelling [Unknown]
